FAERS Safety Report 6913577-9 (Version None)
Quarter: 2010Q3

REPORT INFORMATION
  Report Type: 
  Country: None (occurrence: None)
  Receive Date: 20100803
  Receipt Date: 20100719
  Transmission Date: 20110219
  Serious: Yes (Other)
  Sender: FDA-Public Use
  Company Number: 010597

PATIENT
  Age: 38 Year
  Sex: Male

DRUGS (1)
  1. BUSULFEX [Suspect]
     Indication: ESSENTIAL THROMBOCYTHAEMIA

REACTIONS (1)
  - DEEP VEIN THROMBOSIS [None]
